FAERS Safety Report 21663905 (Version 7)
Quarter: 2023Q2

REPORT INFORMATION
  Report Type: Report from Study
  Country: FR (occurrence: None)
  Receive Date: 20221130
  Receipt Date: 20230608
  Transmission Date: 20230721
  Serious: Yes (Hospitalization)
  Sender: FDA-Public Use
  Company Number: FR-ROCHE-3226215

PATIENT
  Age: 40 Year
  Sex: Female
  Weight: 94.7 kg

DRUGS (23)
  1. GLOFITAMAB [Suspect]
     Active Substance: GLOFITAMAB
     Indication: Lymphoma
     Dosage: ON 19/OCT/2022, SHE RECEIVED LAST DOSE OF GLOFITAMAB (10 MG) PRIOR TO SAE
     Route: 065
     Dates: start: 20221017
  2. OBINUTUZUMAB [Suspect]
     Active Substance: OBINUTUZUMAB
     Indication: Lymphoma
     Dosage: ON 14/OCT/2022, SHE RECEIVED LAST DOSE OF OBINUTUZUMAB (1000 MG) PRIOR TO SAE
     Route: 042
     Dates: start: 20221014
  3. PREDNISONE [Concomitant]
     Active Substance: PREDNISONE
     Indication: Lymphoma
     Dates: start: 20221014
  4. VALACYCLOVIR HYDROCHLORIDE [Concomitant]
     Active Substance: VALACYCLOVIR HYDROCHLORIDE
     Dates: start: 20220927
  5. ATOVAQUONE [Concomitant]
     Active Substance: ATOVAQUONE
     Dates: start: 20220927
  6. AMOXICILLIN [Concomitant]
     Active Substance: AMOXICILLIN
  7. MAGNESIUM [Concomitant]
     Active Substance: MAGNESIUM
     Indication: Magnesium deficiency
  8. CHOLECALCIFEROL [Concomitant]
     Active Substance: CHOLECALCIFEROL
     Indication: Vitamin D deficiency
     Dosage: 100000 UI
  9. CALCIUM\CHOLECALCIFEROL [Concomitant]
     Active Substance: CALCIUM\CHOLECALCIFEROL
     Indication: Vitamin D deficiency
  10. PANTOPRAZOLE [Concomitant]
     Active Substance: PANTOPRAZOLE
  11. TRAMADOL [Concomitant]
     Active Substance: TRAMADOL
     Indication: Lymphoma
  12. METOCLOPRAMIDE [Concomitant]
     Active Substance: METOCLOPRAMIDE
     Indication: Lymphoma
  13. VIMPAT [Concomitant]
     Active Substance: LACOSAMIDE
     Indication: Lymphoma
  14. POTASSIUM CHLORIDE [Concomitant]
     Active Substance: POTASSIUM CHLORIDE
     Indication: Hypokalaemia
  15. FUROSEMIDE [Concomitant]
     Active Substance: FUROSEMIDE
     Indication: Lymphoma
  16. PAROXETINE [Concomitant]
     Active Substance: PAROXETINE
  17. ALPRAZOLAM [Concomitant]
     Active Substance: ALPRAZOLAM
     Indication: Lymphoma
  18. ZOPICLONE [Concomitant]
     Active Substance: ZOPICLONE
  19. OXYCODONE [Concomitant]
     Active Substance: OXYCODONE
     Indication: Lymphoma
  20. OXYCODONE HYDROCHLORIDE [Concomitant]
     Active Substance: OXYCODONE HYDROCHLORIDE
  21. DUPHALAC [Concomitant]
     Active Substance: LACTULOSE
  22. MINERAL OIL [Concomitant]
     Active Substance: MINERAL OIL
  23. MORPHINE [Concomitant]
     Active Substance: MORPHINE
     Dosage: 1 MG/H
     Dates: start: 20221028

REACTIONS (1)
  - Immune effector cell-associated neurotoxicity syndrome [Not Recovered/Not Resolved]

NARRATIVE: CASE EVENT DATE: 20221101
